FAERS Safety Report 15943928 (Version 1)
Quarter: 2019Q1

REPORT INFORMATION
  Report Type: Spontaneous
  Country: US (occurrence: US)
  Receive Date: 20190118
  Receipt Date: 20190118
  Transmission Date: 20190417
  Serious: No
  Sender: FDA-Public Use
  Company Number: None

PATIENT
  Age: 59 Year
  Sex: Male

DRUGS (1)
  1. ABIRATERONE 250MG TAB [Suspect]
     Active Substance: ABIRATERONE
     Indication: NEOPLASM MALIGNANT
     Dates: start: 20180801

REACTIONS (3)
  - Wrong technique in product usage process [None]
  - Product size issue [None]
  - Product use complaint [None]

NARRATIVE: CASE EVENT DATE: 20180818
